FAERS Safety Report 4304187-0 (Version None)
Quarter: 2004Q1

REPORT INFORMATION
  Report Type: 
  Country: None (occurrence: None)
  Receive Date: 20040224
  Receipt Date: 20040213
  Transmission Date: 20041129
  Serious: No
  Sender: FDA-Public Use
  Company Number: 2004PK00341

PATIENT
  Age: 80 Year
  Sex: Female
  Weight: 63 kg

DRUGS (5)
  1. NEXIUM [Suspect]
     Indication: OESOPHAGEAL DISORDER
     Dosage: 40 MG DAILY PO
     Route: 048
     Dates: start: 20040120, end: 20040123
  2. CORDARONE [Suspect]
     Indication: ARRHYTHMIA
     Dosage: 200 MG DAILY PO
     Route: 048
  3. ASPIRIN [Concomitant]
  4. FRAGMIN [Concomitant]
  5. CONCOR [Concomitant]

REACTIONS (2)
  - HYPONATRAEMIA [None]
  - INAPPROPRIATE ANTIDIURETIC HORMONE SECRETION [None]
